FAERS Safety Report 10032163 (Version 1)
Quarter: 2014Q1

REPORT INFORMATION
  Report Type: Spontaneous
  Country: US (occurrence: US)
  Receive Date: 20140324
  Receipt Date: 20140324
  Transmission Date: 20141002
  Serious: Yes (Other)
  Sender: FDA-Public Use
  Company Number: US-ABBVIE-14P-163-1214300-00

PATIENT
  Age: 24 Year
  Sex: Female

DRUGS (5)
  1. HUMIRA [Suspect]
     Indication: CROHN^S DISEASE
  2. ANTIBIOTICS [Concomitant]
     Indication: PRODUCT USED FOR UNKNOWN INDICATION
     Dates: start: 2013
  3. REMICADE [Concomitant]
     Indication: CROHN^S DISEASE
     Dates: start: 2013
  4. IMURAN [Concomitant]
     Indication: CROHN^S DISEASE
     Dates: start: 2013
  5. CIMZIA [Concomitant]
     Indication: CROHN^S DISEASE
     Dates: start: 2013

REACTIONS (4)
  - Colectomy [Not Recovered/Not Resolved]
  - Condition aggravated [Unknown]
  - Weight decreased [Unknown]
  - Drug ineffective [Unknown]
